FAERS Safety Report 8764666 (Version 1)
Quarter: 2012Q4

REPORT INFORMATION
  Report Type: 
  Country: GB (occurrence: GB)
  Receive Date: 20120831
  Receipt Date: 20120831
  Transmission Date: 20130627
  Serious: Yes (Life-Threatening, Hospitalization, Disabling)
  Sender: FDA-Public Use
  Company Number: GB-TEVA-356054ISR

PATIENT
  Age: 47 Year
  Sex: Female

DRUGS (2)
  1. BACLOFEN [Suspect]
     Indication: ALCOHOLISM
     Route: 048
     Dates: start: 201203
  2. DISULFIRAM [Suspect]
     Indication: ALCOHOLISM
     Dosage: 400mg Monday and Wednesday, 600mg Friday.
     Route: 048
     Dates: start: 20120622, end: 20120723

REACTIONS (1)
  - Hepatitis acute [Recovering/Resolving]
